FAERS Safety Report 9198884 (Version 1)
Quarter: 2013Q1

REPORT INFORMATION
  Report Type: Spontaneous
  Country: IL (occurrence: IL)
  Receive Date: 20130329
  Receipt Date: 20130329
  Transmission Date: 20140127
  Serious: Yes (Hospitalization)
  Sender: FDA-Public Use
  Company Number: IL-009507513-1210ISR008092

PATIENT
  Age: 70 Year
  Sex: Male

DRUGS (2)
  1. JANUET [Suspect]
     Indication: DIABETES MELLITUS
     Dosage: UNK
     Route: 048
     Dates: start: 2011
  2. DABIGATRAN [Interacting]
     Dosage: UNK
     Dates: start: 2012

REACTIONS (3)
  - Hepatitis [Unknown]
  - Hepatitis [Recovered/Resolved]
  - Drug interaction [Recovered/Resolved]
